FAERS Safety Report 5627343-8 (Version None)
Quarter: 2008Q1

REPORT INFORMATION
  Report Type: 
  Country: None (occurrence: None)
  Receive Date: 20080215
  Receipt Date: 20080207
  Transmission Date: 20080703
  Serious: Yes (Hospitalization)
  Sender: FDA-Public Use
  Company Number: BR-JNJFOC-20080202115

PATIENT
  Age: 55 Year
  Sex: Female
  Weight: 70 kg

DRUGS (2)
  1. ULTRACET [Suspect]
     Indication: EXOSTOSIS
     Route: 065
  2. ULTRACET [Suspect]
     Indication: PAIN
     Dosage: ACETAMINOPHEN 325M AND TRAMADOL HYDROCHLORIDE 37.5MG
     Route: 065

REACTIONS (4)
  - ABDOMINAL PAIN UPPER [None]
  - MALAISE [None]
  - VERTIGO [None]
  - VOMITING [None]
